FAERS Safety Report 6056760-X (Version None)
Quarter: 2009Q1

REPORT INFORMATION
  Report Type: 
  Country: None (occurrence: None)
  Receive Date: 20090129
  Receipt Date: 20090121
  Transmission Date: 20090719
  Serious: Yes (Hospitalization)
  Sender: FDA-Public Use
  Company Number: US-WYE-H07819809

PATIENT
  Age: 53 Year
  Sex: Female
  Weight: 79 kg

DRUGS (2)
  1. ROBITUSSIN COUGH AND COLD CF [Suspect]
     Indication: NASOPHARYNGITIS
     Dosage: 1 FULL DOSAGE CUP AS NEEDED
     Route: 048
     Dates: start: 20090112, end: 20090113
  2. LISINOPRIL [Concomitant]
     Indication: BLOOD PRESSURE INCREASED
     Dosage: UNKNOWN
     Route: 048

REACTIONS (5)
  - CHEST DISCOMFORT [None]
  - CHEST PAIN [None]
  - HEART RATE INCREASED [None]
  - OVERDOSE [None]
  - PALPITATIONS [None]
